FAERS Safety Report 8310546-1 (Version None)
Quarter: 2012Q2

REPORT INFORMATION
  Report Type: 
  Country: None (occurrence: None)
  Receive Date: 20120425
  Receipt Date: 20120413
  Transmission Date: 20120825
  Serious: Yes (Death, Hospitalization)
  Sender: FDA-Public Use
  Company Number: IT-CELGENEUS-083-21880-12032834

PATIENT

DRUGS (12)
  1. REVLIMID [Suspect]
     Indication: NON-HODGKIN'S LYMPHOMA
     Dosage: 25 MILLIGRAM
     Route: 048
     Dates: start: 20100608, end: 20100613
  2. PRAVASTATINA [Concomitant]
     Dosage: 20 MILLIGRAM
     Route: 065
  3. X-PREP [Concomitant]
     Indication: CONSTIPATION
     Route: 065
     Dates: start: 20100531, end: 20100729
  4. BEPANTEN [Concomitant]
     Route: 065
     Dates: start: 20100531, end: 20100729
  5. DEXAMETHASONE [Concomitant]
     Indication: NON-HODGKIN'S LYMPHOMA
     Route: 065
  6. EPREX [Concomitant]
     Indication: PRODUCT USED FOR UNKNOWN INDICATION
     Route: 065
     Dates: start: 20100531
  7. ASPIRIN [Concomitant]
     Indication: THROMBOSIS PROPHYLAXIS
     Route: 065
     Dates: start: 20090617, end: 20100729
  8. OMEPRAZOLE [Concomitant]
     Indication: PROPHYLAXIS
     Dosage: 20 MILLIGRAM
     Route: 065
  9. ALLOPURINOL [Concomitant]
     Indication: PROPHYLAXIS
     Dosage: 300 MILLIGRAM
     Route: 065
  10. ACETAMINOPHEN [Concomitant]
     Indication: PAIN
     Route: 065
     Dates: start: 20100519, end: 20100729
  11. FERROUS SULFATE TAB [Concomitant]
     Route: 065
     Dates: start: 20100531, end: 20100729
  12. PERIDON [Concomitant]
     Indication: NAUSEA
     Route: 065
     Dates: start: 20100729

REACTIONS (5)
  - DIARRHOEA [None]
  - ANAEMIA [None]
  - CEREBRAL INFARCTION [None]
  - SEPTIC SHOCK [None]
  - INFECTION [None]
